FAERS Safety Report 20126849 (Version 1)
Quarter: 2021Q4

REPORT INFORMATION
  Report Type: Spontaneous
  Country: US (occurrence: None)
  Receive Date: 20211129
  Receipt Date: 20211129
  Transmission Date: 20220303
  Serious: Yes (Hospitalization)
  Sender: FDA-Public Use
  Company Number: None

PATIENT
  Age: 69 Year
  Sex: Male
  Weight: 74 kg

DRUGS (1)
  1. BACLOFEN [Suspect]
     Active Substance: BACLOFEN
     Indication: Muscle spasms
     Dosage: FREQUENCY : TWICE A DAY;?
     Route: 048
     Dates: start: 20210613, end: 20210614

REACTIONS (12)
  - Mental status changes [None]
  - Pollakiuria [None]
  - Urinary incontinence [None]
  - Dialysis [None]
  - Confusional state [None]
  - Sedation [None]
  - Blood pressure increased [None]
  - Proteinuria [None]
  - Haematuria [None]
  - Blood urea increased [None]
  - Blood potassium increased [None]
  - Blood creatine increased [None]

NARRATIVE: CASE EVENT DATE: 20210614
